FAERS Safety Report 7507775-3 (Version None)
Quarter: 2011Q2

REPORT INFORMATION
  Report Type: 
  Country: None (occurrence: None)
  Receive Date: 20110527
  Receipt Date: 20110518
  Transmission Date: 20111010
  Serious: No
  Sender: FDA-Public Use
  Company Number: US-BIOGENIDEC-2011BI018923

PATIENT
  Age: 33 Year
  Sex: Male

DRUGS (2)
  1. AVONEX [Concomitant]
     Indication: MULTIPLE SCLEROSIS
     Route: 030
     Dates: start: 20080808
  2. TYSABRI [Suspect]
     Indication: MULTIPLE SCLEROSIS
     Route: 042
     Dates: start: 20110225

REACTIONS (7)
  - HYPERSENSITIVITY [None]
  - PYREXIA [None]
  - RESPIRATORY TRACT CONGESTION [None]
  - SKIN IRRITATION [None]
  - COUGH [None]
  - OEDEMA PERIPHERAL [None]
  - PNEUMONIA [None]
